FAERS Safety Report 5598187-0 (Version None)
Quarter: 2008Q1

REPORT INFORMATION
  Report Type: 
  Country: None (occurrence: None)
  Receive Date: 20080122
  Receipt Date: 20080111
  Transmission Date: 20080703
  Serious: Yes (Hospitalization)
  Sender: FDA-Public Use
  Company Number: PHRM2008FR00578

PATIENT
  Age: 1 Day
  Sex: Male
  Weight: 2.22 kg

DRUGS (5)
  1. TRILEPTAL [Suspect]
     Route: 064
  2. URBANYL [Suspect]
     Route: 064
  3. EPITOMAX [Suspect]
     Route: 064
  4. VALIUM [Suspect]
     Dosage: UNK, UNK
     Route: 064
     Dates: start: 20061109
  5. RIVOTRIL [Suspect]
     Route: 064
     Dates: start: 20061109

REACTIONS (14)
  - BASE EXCESS DECREASED [None]
  - BLOOD PH DECREASED [None]
  - BRADYCARDIA NEONATAL [None]
  - CONTINUOUS POSITIVE AIRWAY PRESSURE [None]
  - DRUG EXPOSURE DURING PREGNANCY [None]
  - ELECTROENCEPHALOGRAM ABNORMAL [None]
  - HYPERCAPNIA [None]
  - HYPOTONIA NEONATAL [None]
  - INFANTILE APNOEIC ATTACK [None]
  - MECHANICAL VENTILATION [None]
  - NEONATAL RESPIRATORY ACIDOSIS [None]
  - NEONATAL RESPIRATORY DISTRESS SYNDROME [None]
  - PCO2 INCREASED [None]
  - PREMATURE BABY [None]
